FAERS Safety Report 6681606-6 (Version None)
Quarter: 2010Q2

REPORT INFORMATION
  Report Type: 
  Country: None (occurrence: None)
  Receive Date: 20100414
  Receipt Date: 20100409
  Transmission Date: 20101027
  Serious: Yes (Hospitalization, Other)
  Sender: FDA-Public Use
  Company Number: HQWYE586229JUL04

PATIENT
  Sex: Female

DRUGS (7)
  1. PREMPRO [Suspect]
  2. PROVERA [Suspect]
  3. CYCRIN [Suspect]
  4. PREMPHASE 14/14 [Suspect]
  5. ESTROGENS [Suspect]
  6. PREMARIN [Suspect]
  7. MEDROXYPROGESTERONE ACETATE [Suspect]

REACTIONS (1)
  - BREAST CANCER METASTATIC [None]
